FAERS Safety Report 13347995 (Version 1)
Quarter: 2017Q1

REPORT INFORMATION
  Report Type: Spontaneous
  Country: US (occurrence: US)
  Receive Date: 20170318
  Receipt Date: 20170318
  Transmission Date: 20170428
  Serious: Yes (Other)
  Sender: FDA-Public Use
  Company Number: US-AMGEN-USASP2017039257

PATIENT
  Age: 57 Year
  Sex: Female

DRUGS (4)
  1. CALCIUM 600 + D3 PLUS MINERALS [Concomitant]
     Dosage: UNK
  2. ENBREL [Suspect]
     Active Substance: ETANERCEPT
     Indication: RHEUMATOID ARTHRITIS
     Dosage: 50 MG, QWK
     Route: 058
  3. CLOBETASOL PROPIONATE. [Concomitant]
     Active Substance: CLOBETASOL PROPIONATE
     Dosage: UNK
  4. FISH OIL [Concomitant]
     Active Substance: FISH OIL
     Dosage: UNK

REACTIONS (6)
  - Rheumatoid arthritis [Unknown]
  - Dental care [Unknown]
  - Nasopharyngitis [Unknown]
  - Irritability [Unknown]
  - Sinusitis [Unknown]
  - Malaise [Unknown]
